FAERS Safety Report 24177804 (Version 1)
Quarter: 2024Q3

REPORT INFORMATION
  Report Type: Spontaneous
  Country: US (occurrence: US)
  Receive Date: 20240806
  Receipt Date: 20240806
  Transmission Date: 20241017
  Serious: No
  Sender: RANBAXY
  Company Number: US-SUN PHARMACEUTICAL INDUSTRIES LTD-2024R1-459711

PATIENT
  Sex: Male

DRUGS (1)
  1. ODOMZO [Suspect]
     Active Substance: SONIDEGIB
     Indication: Skin neoplasm excision
     Dosage: 200 MILLIGRAM, QD
     Route: 048
     Dates: start: 20240626

REACTIONS (2)
  - Therapy interrupted [Unknown]
  - Feeling abnormal [Unknown]
